FAERS Safety Report 6917112-0 (Version None)
Quarter: 2010Q3

REPORT INFORMATION
  Report Type: 
  Country: None (occurrence: None)
  Receive Date: 20100810
  Receipt Date: 20100802
  Transmission Date: 20110219
  Serious: Yes (Other)
  Sender: FDA-Public Use
  Company Number: B0668779A

PATIENT

DRUGS (1)
  1. ALKERAN [Suspect]
     Dosage: 50MG UNKNOWN
     Route: 042

REACTIONS (4)
  - DIARRHOEA [None]
  - FEBRILE NEUTROPENIA [None]
  - INFECTION [None]
  - STOMATITIS [None]
